FAERS Safety Report 4523521-X (Version None)
Quarter: 2004Q4

REPORT INFORMATION
  Report Type: 
  Country: None (occurrence: None)
  Receive Date: 20041117
  Receipt Date: 20040726
  Transmission Date: 20050328
  Serious: Yes (Life-Threatening, Hospitalization)
  Sender: FDA-Public Use
  Company Number: US-JNJFOC-20040706828

PATIENT
  Age: 77 Year
  Sex: Female

DRUGS (34)
  1. LEVOFLOXACIN [Suspect]
     Indication: PNEUMONIA
     Dosage: INTRAVENOUS
     Route: 042
     Dates: start: 20040229, end: 20040303
  2. LEVOFLOXACIN [Suspect]
     Indication: PNEUMONIA
     Dosage: ORAL
     Route: 048
     Dates: start: 20040304, end: 20040306
  3. ZESTRIL [Concomitant]
  4. LASIX [Concomitant]
  5. FOSAMAX [Concomitant]
  6. NEXIUM [Concomitant]
  7. CALCIUM (CALCIUM) [Concomitant]
  8. ASIPRIN (ACETYLSALICYLIC ACID) [Concomitant]
  9. FLEXERIL (CYCLOBENZAPRINEI HYDROCHLORIDE) [Concomitant]
  10. PAXIL [Concomitant]
  11. ZOCOR [Concomitant]
  12. BETOPTIC [Concomitant]
  13. HYDRALAZINE HCL TAB [Concomitant]
  14. CARDIZEM [Concomitant]
  15. SOLU-MEDROL [Concomitant]
  16. VENTOLIN [Concomitant]
  17. ATROVENT [Concomitant]
  18. NOVOLIN (INSULIN HUMAN INJECTION, ISOPHANE) [Concomitant]
  19. PRAVACHOL [Concomitant]
  20. PILOCARPINE (PILOCARPINE) [Concomitant]
  21. GLUCOTROL [Concomitant]
  22. FERROUS SULFATE TAB [Concomitant]
  23. COLACE (DOCUSATE SODIUM) [Concomitant]
  24. KCL (POTASSIUM CHLORIDE) [Concomitant]
  25. ALBUTEROL [Concomitant]
  26. XANAX [Concomitant]
  27. ATIVAN [Concomitant]
  28. PHENERGAN [Concomitant]
  29. PREDNISONE [Concomitant]
  30. REQUIP [Concomitant]
  31. TYLENOL [Concomitant]
  32. METHADONE (METHADONE) [Concomitant]
  33. NITRO-DUR [Concomitant]
  34. PROTONIX [Concomitant]

REACTIONS (2)
  - ACUTE RESPIRATORY FAILURE [None]
  - CARDIAC FAILURE CONGESTIVE [None]
